FAERS Safety Report 25870038 (Version 1)
Quarter: 2025Q4

REPORT INFORMATION
  Report Type: Spontaneous
  Country: US (occurrence: None)
  Receive Date: 20251001
  Receipt Date: 20251001
  Transmission Date: 20260117
  Serious: Yes (Life-Threatening, Hospitalization)
  Sender: FDA-CTU
  Company Number: None

PATIENT
  Age: 4 Month
  Sex: Female
  Weight: 7.5 kg

DRUGS (9)
  1. BABYBIG [Suspect]
     Active Substance: HUMAN BOTULINUM NEUROTOXIN A/B IMMUNE GLOBULIN
     Indication: Botulism
     Dosage: OTHER FREQUENCY : ONCE;?
     Route: 042
     Dates: start: 20250929, end: 20250929
  2. Sodium Chloride 0.9% IV Bolus [Concomitant]
  3. Dexmedetomidine in 0.9% NaCl [Concomitant]
  4. Fentanyl in 0.9% NaCl [Concomitant]
  5. Acyclovir in 0.9% NaCl [Concomitant]
  6. Ceftriaxone in 5% Dextrose [Concomitant]
  7. Vancomycin in 5% Dextrose [Concomitant]
  8. ALBUTEROL [Concomitant]
     Active Substance: ALBUTEROL
  9. NaCl 3% nebulized solution [Concomitant]

REACTIONS (1)
  - Anaphylactic reaction [None]

NARRATIVE: CASE EVENT DATE: 20250929
